FAERS Safety Report 10086770 (Version 6)
Quarter: 2014Q3

REPORT INFORMATION
  Report Type: Spontaneous
  Country: US (occurrence: US)
  Receive Date: 20140418
  Receipt Date: 20140716
  Transmission Date: 20150326
  Serious: Yes (Hospitalization)
  Sender: FDA-Public Use
  Company Number: US-GLAXOSMITHKLINE-A1019478A

PATIENT
  Age: 43 Year
  Sex: Female

DRUGS (4)
  1. TRACLEER [Concomitant]
     Active Substance: BOSENTAN\BOSENTAN MONOHYDRATE
  2. COUMADIN [Concomitant]
     Active Substance: WARFARIN SODIUM
  3. REVATIO [Concomitant]
     Active Substance: SILDENAFIL CITRATE
  4. FLOLAN [Suspect]
     Active Substance: EPOPROSTENOL SODIUM
     Indication: SYSTEMIC LUPUS ERYTHEMATOSUS
     Dosage: 46NGKM CONTINUOUS
     Route: 042
     Dates: start: 20040203

REACTIONS (5)
  - Fluid overload [Unknown]
  - Lung transplant [Unknown]
  - Investigation [Unknown]
  - Fluid retention [Unknown]
  - Inflammatory carcinoma of the breast [Unknown]

NARRATIVE: CASE EVENT DATE: 20140410
